FAERS Safety Report 5827383-X (Version None)
Quarter: 2008Q3

REPORT INFORMATION
  Report Type: 
  Country: None (occurrence: None)
  Receive Date: 20080730
  Receipt Date: 20080721
  Transmission Date: 20090109
  Serious: Yes (Hospitalization)
  Sender: FDA-Public Use
  Company Number: FR-ABBOTT-07P-056-0431396-00

PATIENT
  Sex: Female
  Weight: 40 kg

DRUGS (4)
  1. HUMIRA [Suspect]
     Indication: RHEUMATOID ARTHRITIS
     Route: 058
     Dates: start: 20060101, end: 20071201
  2. ETANERCEPT [Suspect]
     Indication: RHEUMATOID ARTHRITIS
     Route: 058
     Dates: start: 20050101, end: 20051201
  3. PREDNISONE [Concomitant]
     Indication: DRUG USE FOR UNKNOWN INDICATION
  4. CARBONATE OF CALCIUM [Concomitant]
     Indication: DRUG USE FOR UNKNOWN INDICATION

REACTIONS (13)
  - ANAEMIA [None]
  - ANGIOIMMUNOBLASTIC T-CELL LYMPHOMA [None]
  - GENERAL PHYSICAL HEALTH DETERIORATION [None]
  - HYPERGAMMAGLOBULINAEMIA [None]
  - LEUKOPENIA [None]
  - LYMPHOPENIA [None]
  - NEUTROPENIA [None]
  - PHLEBITIS [None]
  - PULMONARY EMBOLISM [None]
  - RED BLOOD CELL SEDIMENTATION RATE DECREASED [None]
  - RED BLOOD CELL SEDIMENTATION RATE INCREASED [None]
  - SEPSIS [None]
  - THROMBOCYTOPENIA [None]
